FAERS Safety Report 6395539-6 (Version None)
Quarter: 2009Q4

REPORT INFORMATION
  Report Type: 
  Country: None (occurrence: None)
  Receive Date: 20091007
  Receipt Date: 20090930
  Transmission Date: 20100525
  Serious: Yes (Hospitalization)
  Sender: FDA-Public Use
  Company Number: WAES 0901USA02680

PATIENT
  Age: 56 Year
  Sex: Female
  Weight: 63.9572 kg

DRUGS (15)
  1. CAP VORINOSTAT UNK [Suspect]
     Indication: MULTIPLE MYELOMA
     Dosage: 400 MG/DAILY/PO
     Route: 048
     Dates: start: 20081124, end: 20081214
  2. CAP VORINOSTAT UNK [Suspect]
     Indication: MULTIPLE MYELOMA
     Dosage: 400 MG/DAILY/PO
     Route: 048
     Dates: start: 20081223, end: 20090105
  3. DEXAMETHASONE [Suspect]
     Indication: MULTIPLE MYELOMA
     Dosage: 40 MG/DAILY/PO
     Route: 048
     Dates: start: 20081124, end: 20081215
  4. DEXAMETHASONE [Suspect]
     Indication: MULTIPLE MYELOMA
     Dosage: 40 MG/DAILY/PO
     Route: 048
     Dates: start: 20081223, end: 20090105
  5. CAP LENALIDOMIDE UNK [Suspect]
     Indication: MULTIPLE MYELOMA
     Dosage: 20 MG/DAILY/PO
     Route: 048
     Dates: start: 20081124, end: 20081214
  6. CAP LENALIDOMIDE UNK [Suspect]
     Indication: MULTIPLE MYELOMA
     Dosage: 20 MG/DAILY/PO
     Route: 048
     Dates: start: 20081223, end: 20090105
  7. AMBIEN [Concomitant]
  8. LEVAQUIN [Concomitant]
  9. Z-PAK [Concomitant]
  10. ZOLOFT [Concomitant]
  11. ZOMETA [Concomitant]
  12. AMOXICILLIN [Concomitant]
  13. FOLIC ACID [Concomitant]
  14. VITAMINS (UNSPECIFIED) [Concomitant]
  15. WARFARIN SODIUM [Concomitant]

REACTIONS (7)
  - HYPOVENTILATION [None]
  - MUSCULOSKELETAL CHEST PAIN [None]
  - NEUTROPENIA [None]
  - PATHOLOGICAL FRACTURE [None]
  - PLASMACYTOMA [None]
  - PULMONARY GRANULOMA [None]
  - STERNAL FRACTURE [None]
